FAERS Safety Report 5159031-9 (Version None)
Quarter: 2006Q4

REPORT INFORMATION
  Report Type: 
  Country: None (occurrence: None)
  Receive Date: 20061117
  Receipt Date: 20061108
  Transmission Date: 20070319
  Serious: Yes (Hospitalization, Other)
  Sender: FDA-Public Use
  Company Number: 163-21880-06110545

PATIENT
  Age: 82 Year
  Sex: Female
  Weight: 50.3493 kg

DRUGS (3)
  1. REVLIMID [Suspect]
     Indication: MYELODYSPLASTIC SYNDROME
     Dosage: 5 MG, 1 IN 1 D, ORAL
     Route: 048
     Dates: start: 20060816, end: 20061027
  2. ARANESP [Concomitant]
  3. LEUKINE [Concomitant]

REACTIONS (2)
  - FULL BLOOD COUNT DECREASED [None]
  - LYMPHADENOPATHY [None]
